FAERS Safety Report 9349614 (Version 2)
Quarter: 2014Q1

REPORT INFORMATION
  Report Type: Spontaneous
  Country: US (occurrence: US)
  Receive Date: 20130614
  Receipt Date: 20140305
  Transmission Date: 20141002
  Serious: Yes (Death, Hospitalization)
  Sender: FDA-Public Use
  Company Number: US-B.I. PHARMACEUTICALS,INC./RIDGEFIELD-2013-BI-16569BP

PATIENT
  Age: 93 Year
  Sex: Male
  Weight: 54.43 kg

DRUGS (6)
  1. PRADAXA [Suspect]
     Indication: CEREBROVASCULAR ACCIDENT PROPHYLAXIS
     Dosage: 300 MG
     Route: 048
     Dates: start: 20110331, end: 20110409
  2. PRADAXA [Suspect]
     Indication: THROMBOSIS PROPHYLAXIS
  3. TERAZOSIN [Concomitant]
     Dosage: 5 MG
     Route: 048
  4. LISINOPRIL [Concomitant]
     Route: 048
  5. LANOXIN [Concomitant]
     Dosage: 125 MCG
     Route: 048
  6. FOLIC ACID [Concomitant]
     Dosage: 2 MG
     Route: 048

REACTIONS (4)
  - Gastrointestinal haemorrhage [Fatal]
  - Renal failure acute [Unknown]
  - Haemorrhagic anaemia [Unknown]
  - Fall [Unknown]
